FAERS Safety Report 22138639 (Version 1)
Quarter: 2023Q1

REPORT INFORMATION
  Report Type: Spontaneous
  Country: US (occurrence: US)
  Receive Date: 20230326
  Receipt Date: 20230326
  Transmission Date: 20230417
  Serious: No
  Sender: FDA-Public Use
  Company Number: US-ALKERMES INC.-ALK-2023-001201

PATIENT
  Age: 55 Year
  Sex: Male

DRUGS (3)
  1. VIVITROL [Suspect]
     Active Substance: NALTREXONE
     Indication: Alcoholism
     Dosage: 380 MILLIGRAM, QMO
     Route: 030
     Dates: start: 20230118
  2. VIVITROL [Suspect]
     Active Substance: NALTREXONE
     Indication: Drug use disorder
  3. BUPROPION [Concomitant]
     Active Substance: BUPROPION
     Indication: Drug use disorder
     Dosage: 300 MILLIGRAM, QD
     Route: 048
     Dates: start: 20230103

REACTIONS (4)
  - Off label use [Not Recovered/Not Resolved]
  - Lack of administration site rotation [Unknown]
  - Injection site reaction [Recovered/Resolved]
  - Injection site pain [Recovered/Resolved]

NARRATIVE: CASE EVENT DATE: 20230118
